FAERS Safety Report 5425954-6 (Version None)
Quarter: 2007Q3

REPORT INFORMATION
  Report Type: 
  Country: None (occurrence: None)
  Receive Date: 20070824
  Receipt Date: 20070824
  Transmission Date: 20080115
  Serious: Yes (Life-Threatening, Disabling)
  Sender: FDA-Public Use
  Company Number: None

PATIENT
  Age: 64 Year
  Sex: Female
  Weight: 96.2 kg

DRUGS (9)
  1. HEPARIN [Suspect]
     Indication: DEEP VEIN THROMBOSIS
     Dosage: C 1
     Dates: start: 20070123, end: 20070129
  2. WARFARIN SODIUM [Suspect]
     Indication: DEEP VEIN THROMBOSIS
     Dosage: 5 - 7.5 MG PO QD
     Route: 048
     Dates: start: 20070123, end: 20070128
  3. APAP TAB [Concomitant]
  4. DEXA [Concomitant]
  5. DOCUSATE [Concomitant]
  6. CLARINEX [Concomitant]
  7. NEXIUM [Concomitant]
  8. LOVASTATIN [Concomitant]
  9. ATENOLOL [Concomitant]

REACTIONS (2)
  - ACTIVATED PARTIAL THROMBOPLASTIN TIME PROLONGED [None]
  - INTRACRANIAL HAEMATOMA [None]
